FAERS Safety Report 6383690-6 (Version None)
Quarter: 2009Q4

REPORT INFORMATION
  Report Type: 
  Country: None (occurrence: None)
  Receive Date: 20091001
  Receipt Date: 20090922
  Transmission Date: 20100525
  Serious: Yes (Other)
  Sender: FDA-Public Use
  Company Number: US-ASTRAZENECA-2009SE14707

PATIENT
  Sex: Male

DRUGS (5)
  1. METOPROLOL SUCCINATE [Suspect]
     Route: 048
  2. PLAVIX [Concomitant]
  3. ENALAPRIL MALEATE [Concomitant]
  4. SIMVASTIN [Concomitant]
  5. TRAMADOL HCL [Concomitant]

REACTIONS (2)
  - HYPERTENSION [None]
  - MYOCARDIAL INFARCTION [None]
